FAERS Safety Report 14949944 (Version 2)
Quarter: 2018Q3

REPORT INFORMATION
  Report Type: Report from Study
  Country: CA (occurrence: CA)
  Receive Date: 20180530
  Receipt Date: 20180706
  Transmission Date: 20181010
  Serious: Yes (Other)
  Sender: FDA-Public Use
  Company Number: CA-BRISTOL-MYERS SQUIBB COMPANY-BMS-2018-038542

PATIENT
  Age: 58 Year
  Sex: Male

DRUGS (4)
  1. TAPAZOLE [Concomitant]
     Active Substance: METHIMAZOLE
     Indication: PRODUCT USED FOR UNKNOWN INDICATION
     Route: 065
  2. ATENOLOL. [Concomitant]
     Active Substance: ATENOLOL
     Indication: PRODUCT USED FOR UNKNOWN INDICATION
     Route: 065
  3. NIVOLUMAB [Suspect]
     Active Substance: NIVOLUMAB
     Indication: SQUAMOUS CELL CARCINOMA OF HEAD AND NECK
     Dosage: 480 MG, Q4WK
     Route: 042
     Dates: start: 20180424
  4. NORVASC [Concomitant]
     Active Substance: AMLODIPINE BESYLATE
     Indication: PRODUCT USED FOR UNKNOWN INDICATION
     Route: 065

REACTIONS (15)
  - Tremor [Unknown]
  - Myalgia [Unknown]
  - Dyspnoea [Unknown]
  - Palpitations [Unknown]
  - Hyperthyroidism [Recovered/Resolved]
  - Pain [Unknown]
  - Lethargy [Unknown]
  - Heart rate increased [Recovering/Resolving]
  - Somnolence [Unknown]
  - Depression [Unknown]
  - Hypothyroidism [Unknown]
  - Blood pressure increased [Recovering/Resolving]
  - Decreased appetite [Unknown]
  - Nausea [Unknown]
  - Weight decreased [Unknown]

NARRATIVE: CASE EVENT DATE: 20180515
